FAERS Safety Report 7042859-8 (Version None)
Quarter: 2010Q4

REPORT INFORMATION
  Report Type: 
  Country: None (occurrence: None)
  Receive Date: 20101013
  Receipt Date: 20091203
  Transmission Date: 20110411
  Serious: No
  Sender: FDA-Public Use
  Company Number: US-ASTRAZENECA-2009SE30054

PATIENT
  Sex: Female
  Weight: 60.8 kg

DRUGS (3)
  1. SYMBICORT [Suspect]
     Dosage: 160 UG TOTAL DAILY DOSE
     Route: 055
     Dates: start: 20090302
  2. SINGULAIR [Concomitant]
  3. PROAIR HFA [Concomitant]

REACTIONS (3)
  - ABDOMINAL PAIN UPPER [None]
  - AGEUSIA [None]
  - DRY MOUTH [None]
